FAERS Safety Report 6623435-5 (Version None)
Quarter: 2010Q1

REPORT INFORMATION
  Report Type: 
  Country: None (occurrence: None)
  Receive Date: 20100305
  Receipt Date: 20100219
  Transmission Date: 20100710
  Serious: Yes (Death)
  Sender: FDA-Public Use
  Company Number: 2010SA012046

PATIENT

DRUGS (12)
  1. FLUDARABINE PHOSPHATE [Suspect]
     Indication: PERIPHERAL T-CELL LYMPHOMA UNSPECIFIED
     Dosage: 25 MILLIGRAM(S)/SQUARE METER;ORAL
     Route: 048
  2. CAMPATH [Suspect]
     Indication: PERIPHERAL T-CELL LYMPHOMA UNSPECIFIED
     Dosage: 3 MILLIGRAM(S); 10 MILLIGRAM(S); 30 MILLIGRAM(S); 10 MILLIGRAM(S); 30 MILLIGRAM(S)
  3. CYCLOPHOSPHAMIDE [Suspect]
     Indication: PERIPHERAL T-CELL LYMPHOMA UNSPECIFIED
     Dosage: 600 MILLIGRAM(S) /SQUARE METER
  4. DOXORUBICIN HCL [Suspect]
     Indication: PERIPHERAL T-CELL LYMPHOMA UNSPECIFIED
     Dosage: 50 MILLIGRAM(S) /SQUARE METER
  5. CLEMASTINE FUMARATE [Concomitant]
  6. ACETAMINOPHEN [Concomitant]
  7. PREDNISONE [Concomitant]
  8. SEROTONIN [Concomitant]
  9. ANTAGONISTS [Concomitant]
  10. SULFAMETHOXAZOLE AND TRIMETHOPRIM [Concomitant]
  11. FAMCICLOVIR [Concomitant]
  12. GRANULOCYTE COL,ONY STIMULATING FACTOR [Concomitant]

REACTIONS (4)
  - CYTOMEGALOVIRUS INFECTION [None]
  - EPSTEIN-BARR VIRUS ASSOCIATED LYMPHOPROLIFERATIVE DISORDER [None]
  - LEUKOPENIA [None]
  - THROMBOCYTOPENIA [None]
